FAERS Safety Report 12407087 (Version 1)
Quarter: 2016Q2

REPORT INFORMATION
  Report Type: Spontaneous
  Country: FR (occurrence: FR)
  Receive Date: 20160526
  Receipt Date: 20160526
  Transmission Date: 20160815
  Serious: Yes (Hospitalization)
  Sender: FDA-Public Use
  Company Number: FR-PFIZER INC-3187726

PATIENT
  Age: 8 Year
  Sex: Female

DRUGS (4)
  1. IMETH [Suspect]
     Active Substance: METHOTREXATE SODIUM
     Dosage: 30 MG, STRENGTH: 2.5MG, FREQ: FREQ: 1 DAY; INTERVAL: 1
     Route: 048
     Dates: start: 20151218, end: 20160120
  2. PURINETHOL [Suspect]
     Active Substance: MERCAPTOPURINE
     Dosage: 112.5 MG, STRENGTH: 50MG, FREQ: FREQ: 1 DAY; INTERVAL: 1
     Route: 048
     Dates: start: 20151218, end: 20160130
  3. PURINETHOL [Suspect]
     Active Substance: MERCAPTOPURINE
     Indication: ACUTE LYMPHOCYTIC LEUKAEMIA
     Dosage: 87.5 MG, STRENGTH: 50MG, FREQ: FREQ: 1 DAY; INTERVAL: 1
     Route: 048
     Dates: start: 20141030, end: 20151218
  4. IMETH [Suspect]
     Active Substance: METHOTREXATE SODIUM
     Indication: ACUTE LYMPHOCYTIC LEUKAEMIA
     Dosage: 25 MG, STRENGTH: 2.5MG, FREQ: FREQ: 1 WEEK; INTERVAL: 1
     Route: 048
     Dates: start: 20141030, end: 20151218

REACTIONS (3)
  - Vomiting [Unknown]
  - Hepatocellular injury [Recovering/Resolving]
  - Diarrhoea [Recovered/Resolved]

NARRATIVE: CASE EVENT DATE: 20151116
